FAERS Safety Report 12507885 (Version 1)
Quarter: 2016Q2

REPORT INFORMATION
  Report Type: Spontaneous
  Country: CO (occurrence: None)
  Receive Date: 20160628
  Receipt Date: 20160628
  Transmission Date: 20160815
  Serious: Yes (Other)
  Sender: FDA-Public Use
  Company Number: None

PATIENT
  Age: 54 Year
  Sex: Female
  Weight: 85 kg

DRUGS (1)
  1. EZETIMIBE/SIMVASTATINA MK TECNOGUIMICA SA [Suspect]
     Active Substance: EZETIMIBE\SIMVASTATIN
     Indication: HYPERTRIGLYCERIDAEMIA
     Route: 048
     Dates: start: 20160501, end: 20160615

REACTIONS (7)
  - Muscular weakness [None]
  - Fatigue [None]
  - Arthropathy [None]
  - Myalgia [None]
  - Pyrexia [None]
  - Asthenia [None]
  - Dysstasia [None]

NARRATIVE: CASE EVENT DATE: 20160501
